FAERS Safety Report 8546138-9 (Version None)
Quarter: 2012Q3

REPORT INFORMATION
  Report Type: 
  Country: None (occurrence: None)
  Receive Date: 20120727
  Receipt Date: 20101220
  Transmission Date: 20120928
  Serious: Yes (Hospitalization, Other)
  Sender: FDA-Public Use
  Company Number: US-BAYER-201036117NA

PATIENT
  Age: 32 Year
  Sex: Female
  Weight: 86 kg

DRUGS (6)
  1. ZITHROMAX [Concomitant]
     Dosage: UNK
     Dates: start: 20031101
  2. ALBUTEROL [Concomitant]
  3. YASMIN [Suspect]
     Indication: CONTRACEPTION
     Dosage: UNK
     Route: 048
     Dates: start: 20030901, end: 20031201
  4. VITAMIN TAB [Concomitant]
  5. ASCORBIC ACID [Concomitant]
  6. ALLEGRA [Concomitant]

REACTIONS (8)
  - PULMONARY EMBOLISM [None]
  - DYSPNOEA [None]
  - CHEST PAIN [None]
  - BACK PAIN [None]
  - COUGH [None]
  - PULMONARY INFARCTION [None]
  - CHEST DISCOMFORT [None]
  - MENTAL DISORDER [None]
